FAERS Safety Report 4640509-9 (Version None)
Quarter: 2005Q2

REPORT INFORMATION
  Report Type: 
  Country: None (occurrence: None)
  Receive Date: 20050420
  Receipt Date: 20050413
  Transmission Date: 20051028
  Serious: Yes (Other)
  Sender: FDA-Public Use
  Company Number: PHNR2005AU00773

PATIENT
  Age: 65 Year
  Sex: Male

DRUGS (1)
  1. CAFERGOT [Suspect]
     Indication: MIGRAINE WITHOUT AURA
     Dosage: 100MG CAFFEINE PLUS 1MG ERGOTAMINE

REACTIONS (4)
  - DIURETIC EFFECT [None]
  - ENERGY INCREASED [None]
  - PROSTATE CANCER [None]
  - SLEEP DISORDER [None]
